FAERS Safety Report 6505246-4 (Version None)
Quarter: 2009Q4

REPORT INFORMATION
  Report Type: 
  Country: None (occurrence: None)
  Receive Date: 20091218
  Receipt Date: 20091209
  Transmission Date: 20100525
  Serious: Yes (Hospitalization, Other)
  Sender: FDA-Public Use
  Company Number: US-ASTRAZENECA-2009SE10802

PATIENT
  Age: 68 Year
  Sex: Male

DRUGS (6)
  1. CRESTOR [Suspect]
     Route: 048
     Dates: start: 20080917, end: 20081112
  2. LISINOPRIL [Concomitant]
  3. AMLODIPINE [Concomitant]
  4. METOPROLOL TARTRATE [Concomitant]
  5. ALLOPURINOL [Concomitant]
  6. PLAVIX [Concomitant]

REACTIONS (4)
  - CARDIAC FAILURE CHRONIC [None]
  - RENAL FAILURE [None]
  - SEPSIS [None]
  - TUBULOINTERSTITIAL NEPHRITIS [None]
